FAERS Safety Report 5218130-3 (Version None)
Quarter: 2007Q1

REPORT INFORMATION
  Report Type: 
  Country: None (occurrence: None)
  Receive Date: 20061130
  Receipt Date: 20060901
  Transmission Date: 20070707
  Serious: Yes (Hospitalization)
  Sender: FDA-Public Use
  Company Number: US200609001858

PATIENT
  Age: 36 Year
  Sex: Male
  Weight: 124.7 kg

DRUGS (2)
  1. ZYPREXA [Suspect]
     Dosage: 5 MG
  2. ZOLOFT [Concomitant]

REACTIONS (3)
  - DIABETES MELLITUS [None]
  - HYPERTENSION [None]
  - METABOLIC DISORDER [None]
